FAERS Safety Report 24277522 (Version 1)
Quarter: 2024Q3

REPORT INFORMATION
  Report Type: Spontaneous
  Country: US (occurrence: None)
  Receive Date: 20240830
  Receipt Date: 20240830
  Transmission Date: 20241016
  Serious: Yes (Hospitalization)
  Sender: Public
  Company Number: None

PATIENT
  Age: 47 Year
  Sex: Male

DRUGS (10)
  1. COSENTYX [Suspect]
     Active Substance: SECUKINUMAB
     Indication: Hidradenitis
     Dosage: 150MG WEEKLY SQ
     Route: 058
     Dates: start: 202403
  2. CLARITHROMYCIN [Suspect]
     Active Substance: CLARITHROMYCIN
  3. cobetasol proplonate [Concomitant]
  4. Darithromycin [Concomitant]
  5. cellcept [Concomitant]
  6. PAROXETINE [Concomitant]
  7. spironoactone [Concomitant]
  8. AMLODIPINE [Concomitant]
  9. TEMISARTAN [Concomitant]
  10. Triamcino one acetonide [Concomitant]

REACTIONS (4)
  - Wound infection staphylococcal [None]
  - Dehydration [None]
  - Infected cyst [None]
  - Clostridium difficile infection [None]

NARRATIVE: CASE EVENT DATE: 20240701
